FAERS Safety Report 10462058 (Version 2)
Quarter: 2014Q3

REPORT INFORMATION
  Report Type: Spontaneous
  Country: TW (occurrence: TW)
  Receive Date: 20140918
  Receipt Date: 20140923
  Transmission Date: 20150326
  Serious: Yes (Hospitalization)
  Sender: FDA-Public Use
  Company Number: TW-JNJFOC-20140911624

PATIENT
  Age: 60 Year
  Sex: Female
  Weight: 53 kg

DRUGS (2)
  1. SIMPONI [Suspect]
     Active Substance: GOLIMUMAB
     Indication: ANKYLOSING SPONDYLITIS
     Dosage: RECEIVED 26 INJECTIONS APPROXIMATELY
     Route: 058
     Dates: start: 20120723
  2. KLARICID [Concomitant]
     Active Substance: CLARITHROMYCIN
     Route: 065
     Dates: start: 20140518

REACTIONS (4)
  - Weight decreased [Unknown]
  - Interstitial lung disease [Unknown]
  - Mycobacterium tuberculosis complex test positive [Unknown]
  - Bronchiolitis [Unknown]
